FAERS Safety Report 4296897-9 (Version None)
Quarter: 2004Q1

REPORT INFORMATION
  Report Type: 
  Country: None (occurrence: None)
  Receive Date: 20040217
  Receipt Date: 20040205
  Transmission Date: 20041129
  Serious: Yes (Hospitalization)
  Sender: FDA-Public Use
  Company Number: PL-BRISTOL-MYERS SQUIBB COMPANY-12496683

PATIENT
  Age: 62 Year
  Sex: Female

DRUGS (14)
  1. CARBOPLATIN [Suspect]
     Indication: OVARIAN CANCER
     Route: 042
     Dates: start: 20031120, end: 20031120
  2. PACLITAXEL [Suspect]
     Indication: OVARIAN CANCER
     Route: 042
     Dates: start: 20031120, end: 20031120
  3. INTERFERON GAMMA [Suspect]
     Indication: OVARIAN CANCER
     Route: 058
     Dates: start: 20031129, end: 20031129
  4. ENALAPRIL [Concomitant]
     Dates: start: 19900101
  5. ENALAPRIL [Concomitant]
     Dates: start: 19900101
  6. TARDYFERON [Concomitant]
     Dates: start: 20031003
  7. OMEPRAZOL [Concomitant]
     Dates: start: 20031003
  8. DEXAMETHASONE [Concomitant]
     Dates: start: 20031009
  9. CLEMASTINE [Concomitant]
     Dates: start: 20031009
  10. CIMETIDINE HCL [Concomitant]
     Dates: start: 20031009
  11. ZOFRAN [Concomitant]
     Dates: start: 20031009
  12. HYDROCORTISONE [Concomitant]
     Dates: start: 20031009, end: 20031009
  13. PYRALGINUM [Concomitant]
     Dates: start: 20031009, end: 20031009
  14. PAPAVERETUM [Concomitant]
     Dates: start: 20031009, end: 20031009

REACTIONS (6)
  - BALANCE DISORDER [None]
  - BLOOD PRESSURE INCREASED [None]
  - DISORIENTATION [None]
  - DYSGRAPHIA [None]
  - SPINAL DEFORMITY [None]
  - VERTIGO [None]
